FAERS Safety Report 9486956 (Version 1)
Quarter: 2013Q3

REPORT INFORMATION
  Report Type: Spontaneous
  Country: US (occurrence: US)
  Receive Date: 20130829
  Receipt Date: 20130829
  Transmission Date: 20140515
  Serious: Yes (Hospitalization, Other)
  Sender: FDA-Public Use
  Company Number: US-JNJFOC-20130813000

PATIENT
  Sex: Male
  Weight: 57.15 kg

DRUGS (10)
  1. DURAGESIC [Suspect]
     Indication: PAIN
     Dosage: THE PATIENT TREATED 9-10 YEARS BACK
     Route: 062
     Dates: end: 201307
  2. TYLENOL [Suspect]
     Route: 065
  3. TYLENOL [Suspect]
     Indication: PRODUCT USED FOR UNKNOWN INDICATION
     Route: 065
  4. GABAPENTIN [Concomitant]
     Indication: SPINAL DISORDER
     Route: 048
     Dates: start: 2003
  5. OMEPRAZOLE [Concomitant]
     Indication: GASTRIC DISORDER
     Route: 048
  6. AMLODIPINE [Concomitant]
     Route: 048
  7. TIZANIDINE [Concomitant]
     Indication: MUSCLE RELAXANT THERAPY
     Dosage: 1 TO 3 TIMES A DAY
     Route: 048
     Dates: start: 2012
  8. LOSARTAN [Concomitant]
     Indication: BLOOD POTASSIUM
     Dosage: 0.5 - 1 A DAY
     Route: 048
     Dates: start: 2012
  9. ATORVASTATIN [Concomitant]
     Indication: CARDIAC DISORDER
     Dosage: NIGHT DAILY
     Route: 048
     Dates: start: 2012
  10. REMERON [Concomitant]
     Dosage: 1/4 -1/2 TABLET AT NIGHT
     Route: 048
     Dates: start: 201307

REACTIONS (10)
  - Joint injury [Not Recovered/Not Resolved]
  - Depression [Recovering/Resolving]
  - Amnesia [Not Recovered/Not Resolved]
  - Liver disorder [Recovering/Resolving]
  - General physical health deterioration [Not Recovered/Not Resolved]
  - Neuralgia [Not Recovered/Not Resolved]
  - Asthenia [Not Recovered/Not Resolved]
  - Abnormal loss of weight [Not Recovered/Not Resolved]
  - Wrong technique in drug usage process [Recovered/Resolved]
  - Product quality issue [Unknown]
